FAERS Safety Report 4860607-4 (Version None)
Quarter: 2005Q4

REPORT INFORMATION
  Report Type: 
  Country: None (occurrence: None)
  Receive Date: 20051219
  Receipt Date: 20050314
  Transmission Date: 20060501
  Serious: Yes (Disabling)
  Sender: FDA-Public Use
  Company Number: US-MERCK-0503USA02937

PATIENT
  Age: 65 Year
  Sex: Female
  Weight: 66 kg

DRUGS (2)
  1. VIOXX [Suspect]
     Indication: PAIN IN EXTREMITY
     Route: 048
     Dates: start: 20001101, end: 20010201
  2. VIOXX [Suspect]
     Route: 048
     Dates: start: 20010701

REACTIONS (7)
  - CAROTID ARTERY STENOSIS [None]
  - ENCEPHALOPATHY [None]
  - FALL [None]
  - HYPERCHOLESTEROLAEMIA [None]
  - JOINT SPRAIN [None]
  - LACUNAR INFARCTION [None]
  - TRANSIENT ISCHAEMIC ATTACK [None]
